FAERS Safety Report 17006189 (Version 1)
Quarter: 2019Q4

REPORT INFORMATION
  Report Type: Spontaneous
  Country: FR (occurrence: FR)
  Receive Date: 20191107
  Receipt Date: 20191107
  Transmission Date: 20200122
  Serious: Yes (Other)
  Sender: FDA-Public Use
  Company Number: FR-US-PROVELL PHARMACEUTICALS LLC-9016331

PATIENT
  Age: 42 Year
  Sex: Female

DRUGS (1)
  1. LEVOTHYROX NF [Suspect]
     Active Substance: LEVOTHYROXINE SODIUM
     Indication: HYPOTHYROIDISM
     Dates: end: 2017

REACTIONS (17)
  - Mood altered [Unknown]
  - Dizziness [Unknown]
  - Asthenia [Recovered/Resolved]
  - Angina pectoris [Unknown]
  - Gastrointestinal disorder [Unknown]
  - Fatigue [Not Recovered/Not Resolved]
  - Social problem [Unknown]
  - Emotional distress [Unknown]
  - Burning sensation [Unknown]
  - Limb discomfort [Unknown]
  - Personal relationship issue [Unknown]
  - Pain in extremity [Unknown]
  - Hypersomnia [Not Recovered/Not Resolved]
  - Blood thyroid stimulating hormone increased [Unknown]
  - Peripheral swelling [Not Recovered/Not Resolved]
  - C-reactive protein increased [Unknown]
  - Muscle spasms [Unknown]

NARRATIVE: CASE EVENT DATE: 20170731
